FAERS Safety Report 18957211 (Version 1)
Quarter: 2021Q1

REPORT INFORMATION
  Report Type: Spontaneous
  Country: US (occurrence: US)
  Receive Date: 20210302
  Receipt Date: 20210302
  Transmission Date: 20210420
  Serious: Yes (Hospitalization, Other)
  Sender: FDA-Public Use
  Company Number: US-RNT-000012

PATIENT
  Age: 82 Year
  Sex: Female

DRUGS (3)
  1. RISPERIDONE. [Suspect]
     Active Substance: RISPERIDONE
     Indication: PRODUCT USED FOR UNKNOWN INDICATION
     Route: 065
  2. METOPROLOL. [Suspect]
     Active Substance: METOPROLOL
     Indication: PRODUCT USED FOR UNKNOWN INDICATION
     Route: 065
  3. WARFARIN [Suspect]
     Active Substance: WARFARIN
     Indication: PRODUCT USED FOR UNKNOWN INDICATION
     Route: 065

REACTIONS (7)
  - Cardiac arrest [Recovered/Resolved]
  - Hypothermia [Recovered/Resolved]
  - Hypotension [Recovered/Resolved]
  - Mental impairment [Recovered/Resolved]
  - Hypertonia [Recovered/Resolved]
  - Confusional state [Recovered/Resolved]
  - Sinus bradycardia [Recovered/Resolved]
